FAERS Safety Report 7970797-2 (Version None)
Quarter: 2011Q4

REPORT INFORMATION
  Report Type: 
  Country: None (occurrence: None)
  Receive Date: 20111212
  Receipt Date: 20111205
  Transmission Date: 20120403
  Serious: Yes (Hospitalization, Other)
  Sender: FDA-Public Use
  Company Number: PHHY2011US48900

PATIENT
  Sex: Female

DRUGS (1)
  1. GILENYA [Suspect]
     Indication: MULTIPLE SCLEROSIS
     Dosage: 0.5 MG, QD
     Route: 048
     Dates: start: 20110325, end: 20110508

REACTIONS (4)
  - VISUAL ACUITY REDUCED [None]
  - HIP FRACTURE [None]
  - HERPES ZOSTER [None]
  - WHITE BLOOD CELL COUNT DECREASED [None]
